FAERS Safety Report 6854687-4 (Version None)
Quarter: 2010Q3

REPORT INFORMATION
  Report Type: 
  Country: None (occurrence: None)
  Receive Date: 20100717
  Receipt Date: 20080103
  Transmission Date: 20110219
  Serious: No
  Sender: FDA-Public Use
  Company Number: US-PFIZER INC-2008004726

PATIENT
  Sex: Female

DRUGS (2)
  1. CHANTIX [Suspect]
  2. IBUPROFEN [Concomitant]

REACTIONS (2)
  - ABDOMINAL PAIN UPPER [None]
  - DYSURIA [None]
